FAERS Safety Report 16193219 (Version 2)
Quarter: 2019Q2

REPORT INFORMATION
  Report Type: Report from Study
  Country: US (occurrence: US)
  Receive Date: 20190413
  Receipt Date: 20190523
  Transmission Date: 20190711
  Serious: Yes (Hospitalization, Disabling, Other)
  Sender: FDA-Public Use
  Company Number: US-IPSEN BIOPHARMACEUTICALS, INC.-2019-05454

PATIENT
  Age: 51 Year
  Sex: Female

DRUGS (10)
  1. DYSPORT [Suspect]
     Active Substance: ABOBOTULINUMTOXINA
     Indication: SYMPATHETIC POSTERIOR CERVICAL SYNDROME
  2. DYSPORT [Suspect]
     Active Substance: ABOBOTULINUMTOXINA
     Indication: OFF LABEL USE
  3. DYSPORT [Suspect]
     Active Substance: ABOBOTULINUMTOXINA
     Indication: PAIN
  4. DYSPORT [Suspect]
     Active Substance: ABOBOTULINUMTOXINA
     Indication: NEURALGIA
  5. DYSPORT [Suspect]
     Active Substance: ABOBOTULINUMTOXINA
     Indication: MIGRAINE
  6. XEOMIN [Concomitant]
     Active Substance: INCOBOTULINUMTOXINA
     Indication: MIGRAINE
  7. XEOMIN [Concomitant]
     Active Substance: INCOBOTULINUMTOXINA
     Indication: SYMPATHETIC POSTERIOR CERVICAL SYNDROME
  8. DYSPORT [Suspect]
     Active Substance: ABOBOTULINUMTOXINA
     Indication: TORTICOLLIS
     Dosage: 1500 UNITS
     Route: 030
     Dates: start: 20181212, end: 20181212
  9. XEOMIN [Concomitant]
     Active Substance: INCOBOTULINUMTOXINA
     Indication: TORTICOLLIS
     Dates: start: 20170811, end: 20181031
  10. XEOMIN [Concomitant]
     Active Substance: INCOBOTULINUMTOXINA
     Indication: NEURALGIA

REACTIONS (11)
  - Muscle atrophy [Unknown]
  - Pain [Unknown]
  - Paralysis [Unknown]
  - Dyspnoea [Recovered/Resolved]
  - Injection site extravasation [Unknown]
  - Walking disability [Unknown]
  - Off label use [Unknown]
  - Muscular weakness [Recovering/Resolving]
  - Hypoaesthesia oral [Unknown]
  - Choking [Unknown]
  - Dysphagia [Not Recovered/Not Resolved]

NARRATIVE: CASE EVENT DATE: 20181212
